FAERS Safety Report 6100872-9 (Version None)
Quarter: 2009Q1

REPORT INFORMATION
  Report Type: 
  Country: None (occurrence: None)
  Receive Date: 20090304
  Receipt Date: 20090218
  Transmission Date: 20090719
  Serious: Yes (Other)
  Sender: FDA-Public Use
  Company Number: PHHY2009CA05190

PATIENT

DRUGS (2)
  1. DIOVAN [Suspect]
     Indication: HYPERTENSION
     Dosage: UNK
     Dates: end: 20090101
  2. BETA BLOCKING AGENTS [Concomitant]
     Dosage: UNK
     Dates: end: 20090101

REACTIONS (1)
  - METASTATIC NEOPLASM [None]
